FAERS Safety Report 8486993 (Version 3)
Quarter: 2013Q3

REPORT INFORMATION
  Report Type: Spontaneous
  Country: US (occurrence: US)
  Receive Date: 20120402
  Receipt Date: 20130806
  Transmission Date: 20140515
  Serious: Yes (Other)
  Sender: FDA-Public Use
  Company Number: US-ROCHE-1019488

PATIENT
  Age: 15 Year
  Sex: Female
  Weight: 45.4 kg

DRUGS (3)
  1. ACCUTANE [Suspect]
     Indication: ACNE
     Route: 065
     Dates: start: 200502, end: 200508
  2. ACCUTANE [Suspect]
     Route: 065
     Dates: end: 2006
  3. YASMIN [Concomitant]
     Indication: CONTRACEPTION

REACTIONS (9)
  - Crohn^s disease [Unknown]
  - Abscess intestinal [Unknown]
  - Enteritis [Unknown]
  - Inflammatory bowel disease [Unknown]
  - Small intestinal obstruction [Unknown]
  - Irritable bowel syndrome [Unknown]
  - Gastrooesophageal reflux disease [Unknown]
  - Iron deficiency anaemia [Unknown]
  - Epistaxis [Unknown]
